FAERS Safety Report 5830464-8 (Version None)
Quarter: 2008Q3

REPORT INFORMATION
  Report Type: 
  Country: None (occurrence: None)
  Receive Date: 20080801
  Receipt Date: 20071112
  Transmission Date: 20090109
  Serious: Yes (Other)
  Sender: FDA-Public Use
  Company Number: US-BRISTOL-MYERS SQUIBB COMPANY-13744016

PATIENT
  Age: 63 Year
  Sex: Female
  Weight: 54 kg

DRUGS (5)
  1. COUMADIN [Suspect]
     Indication: ATRIAL FIBRILLATION
     Dosage: DOSAGE: 4-7MG
     Dates: start: 20070301
  2. LOPRESSOR [Concomitant]
  3. SYNTHROID [Concomitant]
  4. ESTRACE [Concomitant]
  5. MULTI-VITAMIN [Concomitant]

REACTIONS (5)
  - ANXIETY [None]
  - CONTUSION [None]
  - EYE HAEMORRHAGE [None]
  - HAIR TEXTURE ABNORMAL [None]
  - INTERNATIONAL NORMALISED RATIO DECREASED [None]
